FAERS Safety Report 7165515-4 (Version None)
Quarter: 2010Q4

REPORT INFORMATION
  Report Type: 
  Country: None (occurrence: None)
  Receive Date: 20101215
  Receipt Date: 20100122
  Transmission Date: 20110411
  Serious: No
  Sender: FDA-Public Use
  Company Number: US-AMGEN-QUU380085

PATIENT

DRUGS (7)
  1. ENBREL [Suspect]
     Indication: RHEUMATOID ARTHRITIS
     Dosage: 50 MG, QWK
     Route: 058
     Dates: start: 20080101
  2. METHOTREXATE [Concomitant]
     Dosage: 10 MG, QWK
     Route: 048
  3. FOLATE SODIUM [Concomitant]
  4. PREDNISONE [Concomitant]
     Dosage: 5 MG, UNK
  5. OMEPRAZOLE [Concomitant]
  6. ASPIRIN [Concomitant]
  7. PROPAFENONE HCL [Concomitant]

REACTIONS (9)
  - ARTHRALGIA [None]
  - DYSPHAGIA [None]
  - GINGIVAL PAIN [None]
  - LOCAL SWELLING [None]
  - MUSCULOSKELETAL DISCOMFORT [None]
  - OROPHARYNGEAL PAIN [None]
  - PAIN IN JAW [None]
  - RENAL FUNCTION TEST ABNORMAL [None]
  - TOOTHACHE [None]
